FAERS Safety Report 13824587 (Version 2)
Quarter: 2017Q3

REPORT INFORMATION
  Report Type: Spontaneous
  Country: JP (occurrence: JP)
  Receive Date: 20170802
  Receipt Date: 20170816
  Transmission Date: 20171127
  Serious: Yes (Death, Other)
  Sender: FDA-Public Use
  Company Number: JP-TEVA-2017-JP-002453J

PATIENT
  Age: 96 Year
  Sex: Male

DRUGS (6)
  1. CARBAZOCHROME [Concomitant]
     Active Substance: CARBAZOCHROME
     Indication: MELAENA
     Dosage: 200 MILLIGRAM DAILY;
     Route: 065
  2. WARFARIN [Concomitant]
     Active Substance: WARFARIN
     Indication: ATRIAL FIBRILLATION
     Dosage: 2 MILLIGRAM DAILY;
     Route: 048
     Dates: end: 20170710
  3. CARBAZOCHROME [Concomitant]
     Active Substance: CARBAZOCHROME
     Indication: HAEMORRHAGE
     Dosage: 400 MILLIGRAM DAILY;
     Route: 065
  4. TRANEXAMIC ACID INJECTION 1000MG ^TEVA^ [Suspect]
     Active Substance: TRANEXAMIC ACID
     Indication: HAEMORRHAGE
     Route: 041
     Dates: start: 20170714
  5. NOVOLIN [Concomitant]
     Active Substance: INSULIN HUMAN
     Route: 042
  6. TRANEXAMIC ACID INJECTION 1000MG ^TEVA^ [Suspect]
     Active Substance: TRANEXAMIC ACID
     Indication: MELAENA
     Route: 041
     Dates: start: 20170706, end: 20170713

REACTIONS (1)
  - Seizure [Unknown]
